FAERS Safety Report 23192394 (Version 2)
Quarter: 2024Q4

REPORT INFORMATION
  Report Type: Report from Study
  Country: BR (occurrence: BR)
  Receive Date: 20231116
  Receipt Date: 20241230
  Transmission Date: 20250115
  Serious: Yes (Disabling)
  Sender: TAKEDA
  Company Number: BR-TAKEDA-2023TUS110900

PATIENT
  Sex: Male

DRUGS (4)
  1. HEMO-8R [Suspect]
     Active Substance: ANTIHEMOPHILIC FACTOR, HUMAN RECOMBINANT
     Indication: Factor VIII deficiency
     Dosage: 2050 INTERNATIONAL UNIT, 3/WEEK
     Dates: start: 20210702
  2. FEIBA NF [Suspect]
     Active Substance: ANTI-INHIBITOR COAGULANT COMPLEX
     Indication: Product used for unknown indication
     Dosage: UNK
  3. COAGULATION FACTOR VII HUMAN [Suspect]
     Active Substance: COAGULATION FACTOR VII HUMAN
     Indication: Product used for unknown indication
     Dosage: UNK
  4. COAGULATION FACTOR VII HUMAN [Suspect]
     Active Substance: COAGULATION FACTOR VII HUMAN

REACTIONS (1)
  - Gait disturbance [Unknown]
